FAERS Safety Report 7403777-6 (Version None)
Quarter: 2011Q2

REPORT INFORMATION
  Report Type: 
  Country: None (occurrence: None)
  Receive Date: 20110408
  Receipt Date: 20110329
  Transmission Date: 20111010
  Serious: Yes (Hospitalization)
  Sender: FDA-Public Use
  Company Number: US-BRISTOL-MYERS SQUIBB COMPANY-15383862

PATIENT
  Sex: Female

DRUGS (1)
  1. AVAPRO [Suspect]

REACTIONS (13)
  - COUGH [None]
  - ARTHRALGIA [None]
  - DYSPNOEA [None]
  - OEDEMA PERIPHERAL [None]
  - PYREXIA [None]
  - SKIN DISCOLOURATION [None]
  - CHILLS [None]
  - MUSCLE SPASMS [None]
  - JOINT STIFFNESS [None]
  - THROAT TIGHTNESS [None]
  - SARCOIDOSIS [None]
  - GASTROENTERITIS [None]
  - CONSTIPATION [None]
